FAERS Safety Report 25015098 (Version 3)
Quarter: 2025Q1

REPORT INFORMATION
  Report Type: Spontaneous
  Country: JP (occurrence: JP)
  Receive Date: 20250226
  Receipt Date: 20250314
  Transmission Date: 20250409
  Serious: Yes (Life-Threatening)
  Sender: RADIUS PHARM
  Company Number: JP-RADIUS HEALTH INC.-2025JP001099

PATIENT
  Age: 86 Year
  Sex: Female

DRUGS (1)
  1. ABALOPARATIDE [Suspect]
     Active Substance: ABALOPARATIDE
     Indication: Osteoporosis
     Route: 058
     Dates: start: 20250124, end: 2025

REACTIONS (2)
  - Hypotension [Recovered/Resolved]
  - Shock [Recovered/Resolved]

NARRATIVE: CASE EVENT DATE: 20250124
